FAERS Safety Report 8372851-2 (Version None)
Quarter: 2012Q2

REPORT INFORMATION
  Report Type: 
  Country: None (occurrence: None)
  Receive Date: 20120521
  Receipt Date: 20120515
  Transmission Date: 20120825
  Serious: Yes (Hospitalization, Other)
  Sender: FDA-Public Use
  Company Number: US-PFIZER INC-2012118515

PATIENT
  Sex: Female
  Weight: 95.238 kg

DRUGS (10)
  1. WELLBUTRIN [Concomitant]
     Indication: BIPOLAR DISORDER
  2. LITHIUM [Concomitant]
     Indication: BIPOLAR DISORDER
     Dosage: 300 MG, 2X/DAY
  3. NORVASC [Suspect]
     Indication: HYPERTENSION
     Dosage: 10 MG, DAILY
     Route: 048
     Dates: start: 19950101
  4. PROTONIX [Concomitant]
     Indication: GASTROOESOPHAGEAL REFLUX DISEASE
     Dosage: 40 MG, DAILY
  5. ATIVAN [Concomitant]
     Indication: PANIC ATTACK
  6. COGENTIN [Concomitant]
     Indication: PANIC ATTACK
     Dosage: 1 MG, 3X/DAY
  7. REQUIP [Concomitant]
     Indication: MUSCLE SPASMS
     Dosage: 1 MG, DAILY
     Route: 048
  8. ATIVAN [Concomitant]
     Indication: ANXIETY
     Dosage: 0.5 MG, 3X/DAY
     Route: 048
  9. WELLBUTRIN [Concomitant]
     Indication: DEPRESSION
     Dosage: 300 MG, DAILY
  10. TRAMADOL [Concomitant]
     Indication: PAIN
     Dosage: 50 MG, 3X/DAY

REACTIONS (1)
  - KNEE ARTHROPLASTY [None]
